FAERS Safety Report 24646924 (Version 1)
Quarter: 2024Q4

REPORT INFORMATION
  Report Type: Other
  Country: ES (occurrence: ES)
  Receive Date: 20241121
  Receipt Date: 20241121
  Transmission Date: 20250115
  Serious: Yes (Other)
  Sender: AMNEAL
  Company Number: ES-AMNEAL PHARMACEUTICALS-2024-AMRX-04230

PATIENT

DRUGS (10)
  1. ONGENTYS [Suspect]
     Active Substance: OPICAPONE
     Indication: Product used for unknown indication
     Dosage: UNK
     Route: 065
     Dates: start: 202409, end: 2024
  2. FOSCARBIDOPA\FOSLEVODOPA [Suspect]
     Active Substance: FOSCARBIDOPA\FOSLEVODOPA
     Indication: Parkinson^s disease
     Dosage: 240 MG/ML + 12 MG/ML
     Route: 058
     Dates: start: 20240826, end: 2024
  3. FOSCARBIDOPA\FOSLEVODOPA [Suspect]
     Active Substance: FOSCARBIDOPA\FOSLEVODOPA
     Dosage: INCREASES THE BASELINE DOSE TO 0.21 ML/H, 240 MG/ML +12 MG/ML
     Route: 058
     Dates: start: 2024, end: 2024
  4. FOSCARBIDOPA\FOSLEVODOPA [Suspect]
     Active Substance: FOSCARBIDOPA\FOSLEVODOPA
     Dosage: BASAL DOSE IS REDUCED TO 0.22 ML/H, 240 MG/ML + 12 MG/ML
     Route: 058
     Dates: start: 2024, end: 202409
  5. FOSCARBIDOPA\FOSLEVODOPA [Suspect]
     Active Substance: FOSCARBIDOPA\FOSLEVODOPA
     Dosage: CHANGE TO DOSE FLOW HIGH FLOW: 0.18, BASAL FLOW: 0.16 AND THESAME LOW FLOW; 240 MG/ML + 12 MG/ML
     Route: 058
     Dates: start: 202409, end: 202410
  6. FOSCARBIDOPA\FOSLEVODOPA [Suspect]
     Active Substance: FOSCARBIDOPA\FOSLEVODOPA
     Dosage: HIGH FLOW OF 0.22 ML/HOUR, A BASAL FLOW OF 0.21 ML/HOUR AND ALOW FLOW OF 0.15 ML/HOUR
     Route: 058
     Dates: start: 202410
  7. SILICON [DIMETICONE] [Concomitant]
     Indication: Product used for unknown indication
     Dosage: UNK
     Route: 065
     Dates: start: 2024
  8. QUETIAPINE FUMARATE [Concomitant]
     Active Substance: QUETIAPINE FUMARATE
     Indication: Product used for unknown indication
     Dosage: UNK
     Route: 065
     Dates: start: 202410
  9. PROMETAX [RIVASTIGMINE] [Concomitant]
     Indication: Product used for unknown indication
     Dosage: UNK
     Route: 065
     Dates: start: 2024
  10. RIVASTIGMINE [RIVASTIGMINE HYDROGEN TARTRATE] [Concomitant]
     Indication: Product used for unknown indication
     Dosage: UNK
     Route: 065
     Dates: start: 2024

REACTIONS (17)
  - Akinesia [Unknown]
  - Hallucination [Not Recovered/Not Resolved]
  - Hallucination, visual [Unknown]
  - Hallucination [Unknown]
  - Hallucination [Not Recovered/Not Resolved]
  - Freezing phenomenon [Recovered/Resolved]
  - Bradykinesia [Unknown]
  - Confusional state [Unknown]
  - Infusion site nodule [Not Recovered/Not Resolved]
  - Skin mass [Unknown]
  - Freezing phenomenon [Recovered/Resolved]
  - Unevaluable event [Unknown]
  - Disorientation [Not Recovered/Not Resolved]
  - Daydreaming [Not Recovered/Not Resolved]
  - Depressed mood [Unknown]
  - Somnolence [Unknown]
  - Insomnia [Not Recovered/Not Resolved]

NARRATIVE: CASE EVENT DATE: 20240101
